FAERS Safety Report 6828963-5 (Version None)
Quarter: 2010Q3

REPORT INFORMATION
  Report Type: 
  Country: None (occurrence: None)
  Receive Date: 20100709
  Receipt Date: 20070226
  Transmission Date: 20110219
  Serious: No
  Sender: FDA-Public Use
  Company Number: US-PFIZER INC-2007015633

PATIENT
  Sex: Female
  Weight: 44.91 kg

DRUGS (10)
  1. CHANTIX [Suspect]
     Indication: SMOKING CESSATION THERAPY
     Dates: start: 20070201
  2. ARICEPT [Concomitant]
  3. PAXIL [Concomitant]
  4. XANAX [Concomitant]
  5. PROVIGIL [Concomitant]
     Indication: ENERGY INCREASED
  6. PRILOSEC [Concomitant]
     Indication: GASTRIC DISORDER
  7. VITAMIN B [Concomitant]
  8. MORPHINE [Concomitant]
  9. ZELNORM [Concomitant]
     Indication: CONSTIPATION
  10. OXYCONTIN [Concomitant]

REACTIONS (2)
  - DRUG WITHDRAWAL SYNDROME [None]
  - NERVOUSNESS [None]
